FAERS Safety Report 11879015 (Version 1)
Quarter: 2015Q4

REPORT INFORMATION
  Report Type: Spontaneous
  Country: IT (occurrence: IT)
  Receive Date: 20151230
  Receipt Date: 20151230
  Transmission Date: 20160305
  Serious: Yes (Other)
  Sender: FDA-Public Use
  Company Number: IT-ROCHE-1685807

PATIENT
  Age: 59 Year
  Sex: Female
  Weight: 71 kg

DRUGS (2)
  1. HERCEPTIN [Suspect]
     Active Substance: TRASTUZUMAB
     Indication: BREAST CANCER
     Dosage: 150 MG- 1 VIAL FOR INTRAVENOUS USE
     Route: 042
     Dates: start: 20141230
  2. PERJETA [Suspect]
     Active Substance: PERTUZUMAB
     Indication: BREAST CANCER
     Dosage: 420 MG - VIAL (GLASS) - 30 MG/ML - 1 VIAL
     Route: 042
     Dates: start: 20141230

REACTIONS (2)
  - Left ventricular dysfunction [Not Recovered/Not Resolved]
  - Systolic dysfunction [Not Recovered/Not Resolved]

NARRATIVE: CASE EVENT DATE: 20151201
